FAERS Safety Report 9351820 (Version 1)
Quarter: 2013Q2

REPORT INFORMATION
  Report Type: Spontaneous
  Country: US (occurrence: US)
  Receive Date: 20130617
  Receipt Date: 20130617
  Transmission Date: 20140414
  Serious: No
  Sender: FDA-Public Use
  Company Number: US-AMGEN-USASP2013002331

PATIENT
  Age: 82 Year
  Sex: Female
  Weight: 58.05 kg

DRUGS (9)
  1. XGEVA [Suspect]
     Indication: METASTASES TO BONE
     Dosage: 120 MG, Q4WK
     Route: 058
     Dates: start: 20121214, end: 20121214
  2. LORAZEPAM [Concomitant]
  3. MUPIROCIN [Concomitant]
  4. CETRIZINE [Concomitant]
  5. MS-CONTIN [Concomitant]
  6. VICODIN [Concomitant]
  7. CALCIUM [Concomitant]
  8. ADVIL                              /00044201/ [Concomitant]
  9. ZYRTEC [Concomitant]

REACTIONS (4)
  - Rash erythematous [Recovered/Resolved]
  - Musculoskeletal pain [Unknown]
  - Arthralgia [Unknown]
  - Feeling hot [Recovered/Resolved]
